FAERS Safety Report 23088769 (Version 2)
Quarter: 2023Q4

REPORT INFORMATION
  Report Type: Spontaneous
  Country: US (occurrence: US)
  Receive Date: 20231020
  Receipt Date: 20231023
  Transmission Date: 20240109
  Serious: No
  Sender: FDA-Public Use
  Company Number: US-002147023-NVSC2023US225566

PATIENT
  Weight: 54.43 kg

DRUGS (1)
  1. LEQVIO [Suspect]
     Active Substance: INCLISIRAN SODIUM
     Indication: Hyperlipidaemia
     Dosage: UNK (1 DOSE, 3 MONTH, EVERY 6 MONTHS)
     Route: 058
     Dates: start: 202306

REACTIONS (1)
  - Drug ineffective [Not Recovered/Not Resolved]
